FAERS Safety Report 6685981-8 (Version None)
Quarter: 2010Q2

REPORT INFORMATION
  Report Type: 
  Country: None (occurrence: None)
  Receive Date: 20100419
  Receipt Date: 20100414
  Transmission Date: 20101027
  Serious: Yes (Death, Disabling)
  Sender: FDA-Public Use
  Company Number: PHEH2010US03245

PATIENT

DRUGS (1)
  1. EXELON [Suspect]
     Indication: DEMENTIA
     Dosage: DAILY
     Dates: start: 20090310

REACTIONS (3)
  - ANGIOPATHY [None]
  - CEREBROVASCULAR ACCIDENT [None]
  - INCOHERENT [None]
